FAERS Safety Report 5747257-2 (Version None)
Quarter: 2008Q2

REPORT INFORMATION
  Report Type: 
  Country: None (occurrence: None)
  Receive Date: 20080520
  Receipt Date: 20080505
  Transmission Date: 20081010
  Serious: Yes (Other)
  Sender: FDA-Public Use
  Company Number: 001#1#2008-00286

PATIENT
  Sex: Male

DRUGS (1)
  1. ALPROSTADIL [Suspect]
     Dates: end: 20080421

REACTIONS (3)
  - BLUE TOE SYNDROME [None]
  - CEREBROVASCULAR ACCIDENT [None]
  - FAT EMBOLISM [None]
